FAERS Safety Report 21739885 (Version 2)
Quarter: 2022Q4

REPORT INFORMATION
  Report Type: Other
  Country: US (occurrence: None)
  Receive Date: 20221216
  Receipt Date: 20221219
  Transmission Date: 20230112
  Serious: No
  Sender: FDA-Public Use
  Company Number: US-ROCHE-3244593

PATIENT
  Age: 66 Year
  Sex: Female
  Weight: 83.990 kg

DRUGS (1)
  1. OCREVUS [Suspect]
     Active Substance: OCRELIZUMAB
     Indication: Primary progressive multiple sclerosis
     Dosage: ON DAY 1 AND DAY 15 THEN 600 MG EVERY 6 MONTHS
     Route: 042
     Dates: start: 20201228

REACTIONS (3)
  - COVID-19 [Recovered/Resolved]
  - Cough [Unknown]
  - Sputum discoloured [Not Recovered/Not Resolved]

NARRATIVE: CASE EVENT DATE: 20221126
